FAERS Safety Report 23170212 (Version 1)
Quarter: 2023Q4

REPORT INFORMATION
  Report Type: Spontaneous
  Country: CN (occurrence: None)
  Receive Date: 20231110
  Receipt Date: 20231110
  Transmission Date: 20240110
  Serious: Yes (Other)
  Sender: FDA-Public Use
  Company Number: CN-ROCHE-3450466

PATIENT
  Age: 72 Year
  Sex: Male

DRUGS (3)
  1. PEMBROLIZUMAB [Suspect]
     Active Substance: PEMBROLIZUMAB
     Indication: Gastric cancer
     Route: 041
     Dates: start: 20230425
  2. HERCEPTIN [Suspect]
     Active Substance: TRASTUZUMAB
     Indication: Gastric cancer
     Route: 041
     Dates: start: 20230425
  3. MAGNESIUM ISOGLYCYRRHIZINATE [Concomitant]
     Active Substance: MAGNESIUM ISOGLYCYRRHIZINATE

REACTIONS (5)
  - Blood bilirubin increased [Unknown]
  - Gamma-glutamyltransferase increased [Unknown]
  - Hepatic function abnormal [Unknown]
  - Drug-induced liver injury [Unknown]
  - Hepatic failure [Unknown]

NARRATIVE: CASE EVENT DATE: 20230925
